FAERS Safety Report 8910117 (Version 1)
Quarter: 2012Q4

REPORT INFORMATION
  Report Type: 
  Country: US (occurrence: US)
  Receive Date: 20121114
  Receipt Date: 20121114
  Transmission Date: 20130627
  Serious: Yes (Death)
  Sender: FDA-Public Use
  Company Number: US-BAXTER-2012BAX014093

PATIENT
  Age: 67 Year
  Sex: Male

DRUGS (5)
  1. VANCOMYCIN INJECTION, USP [Suspect]
     Indication: STAPHYLOCOCCUS AUREUS ENDOCARDITIS
  2. VANCOMYCIN INJECTION, USP [Suspect]
     Route: 042
  3. VANCOMYCIN INJECTION, USP [Suspect]
  4. NAFCILLIN [Concomitant]
     Indication: STAPHYLOCOCCUS AUREUS ENDOCARDITIS
  5. COUMADIN [Concomitant]
     Indication: ANTICOAGULANT THERAPY
     Route: 048

REACTIONS (1)
  - Tubulointerstitial nephritis [Fatal]
